FAERS Safety Report 5856754-0 (Version None)
Quarter: 2008Q3

REPORT INFORMATION
  Report Type: 
  Country: None (occurrence: None)
  Receive Date: 20080825
  Receipt Date: 20080813
  Transmission Date: 20090109
  Serious: Yes (Disabling, Other)
  Sender: FDA-Public Use
  Company Number: CA-PFIZER INC-2008065839

PATIENT
  Age: 38 Year
  Sex: Female

DRUGS (7)
  1. LYRICA [Suspect]
     Indication: SLEEP DISORDER
     Route: 048
     Dates: start: 20080501, end: 20080701
  2. SEROQUEL [Concomitant]
  3. TOPAMAX [Concomitant]
  4. PROZAC [Concomitant]
  5. CLONAZEPAM [Concomitant]
  6. CELEBREX [Concomitant]
  7. ZOMIG [Concomitant]

REACTIONS (1)
  - DEAFNESS UNILATERAL [None]
